FAERS Safety Report 19990199 (Version 1)
Quarter: 2021Q4

REPORT INFORMATION
  Report Type: Spontaneous
  Country: US (occurrence: US)
  Receive Date: 20211022
  Receipt Date: 20211022
  Transmission Date: 20220303
  Serious: Yes (Hospitalization)
  Sender: FDA-Public Use
  Company Number: None

PATIENT
  Age: 57 Year
  Sex: Female

DRUGS (2)
  1. CAPECITABINE [Suspect]
     Active Substance: CAPECITABINE
     Indication: Oesophageal carcinoma
     Dosage: TAKE 5 TABLETS (750MG) TWICE DAILY FOR 14 DAYS ON, THEN 7 OFF
     Route: 048
     Dates: start: 20210626
  2. EVEROLIMUS [Concomitant]
     Active Substance: EVEROLIMUS

REACTIONS (2)
  - Nausea [None]
  - Feeding disorder [None]

NARRATIVE: CASE EVENT DATE: 20210927
